FAERS Safety Report 18926765 (Version 1)
Quarter: 2021Q1

REPORT INFORMATION
  Report Type: Spontaneous
  Country: US (occurrence: US)
  Receive Date: 20210223
  Receipt Date: 20210223
  Transmission Date: 20210420
  Serious: No
  Sender: FDA-Public Use
  Company Number: US-BAYER-2021-078995

PATIENT
  Age: 71 Year
  Sex: Female

DRUGS (2)
  1. MIRALAX [Suspect]
     Active Substance: POLYETHYLENE GLYCOL 3350
     Indication: GASTROINTESTINAL DISORDER
     Dosage: RECOMMENDED DOSE DOSE
     Route: 048
  2. COLACE [Suspect]
     Active Substance: DOCUSATE SODIUM

REACTIONS (3)
  - Pyrexia [Not Recovered/Not Resolved]
  - Nausea [None]
  - Dizziness [None]
